FAERS Safety Report 8219236-7 (Version None)
Quarter: 2012Q1

REPORT INFORMATION
  Report Type: 
  Country: None (occurrence: None)
  Receive Date: 20120319
  Receipt Date: 20120306
  Transmission Date: 20120608
  Serious: Yes (Hospitalization, Other)
  Sender: FDA-Public Use
  Company Number: DE-ELI_LILLY_AND_COMPANY-DE201203001794

PATIENT
  Age: 29 Year
  Sex: Female

DRUGS (2)
  1. CLOMIPRAMINE HCL [Concomitant]
     Dosage: 75 MG, QD
     Route: 048
     Dates: start: 20101103
  2. ZYPREXA [Suspect]
     Indication: DEPRESSION
     Dosage: 5 MG, QD
     Route: 048
     Dates: start: 20101105

REACTIONS (3)
  - DEPRESSION [None]
  - WEIGHT INCREASED [None]
  - OFF LABEL USE [None]
